FAERS Safety Report 8020908-8 (Version None)
Quarter: 2011Q4

REPORT INFORMATION
  Report Type: 
  Country: None (occurrence: None)
  Receive Date: 20111229
  Receipt Date: 20111229
  Transmission Date: 20120403
  Serious: Yes (Life-Threatening)
  Sender: FDA-Public Use
  Company Number: None

PATIENT
  Age: 64 Year
  Sex: Male
  Weight: 78 kg

DRUGS (2)
  1. CIPROFLOXACIN [Suspect]
     Indication: SEPSIS
     Dosage: 400 MG ONCE IV
     Route: 042
     Dates: start: 20110810, end: 20110810
  2. VANCOMYCIN [Suspect]
     Indication: SEPSIS
     Dosage: 1900 MG ONCE IV
     Route: 042
     Dates: start: 20110810, end: 20110810

REACTIONS (4)
  - PRURITUS [None]
  - RESPIRATORY DEPRESSION [None]
  - URTICARIA [None]
  - LIP SWELLING [None]
